FAERS Safety Report 23472334 (Version 2)
Quarter: 2024Q1

REPORT INFORMATION
  Report Type: Report from Study
  Country: CA (occurrence: CA)
  Receive Date: 20240202
  Receipt Date: 20240304
  Transmission Date: 20240410
  Serious: Yes (Other)
  Sender: FDA-Public Use
  Company Number: CA-TEVA-VS-3149288

PATIENT
  Age: 31 Year
  Sex: Female

DRUGS (5)
  1. AJOVY [Suspect]
     Active Substance: FREMANEZUMAB-VFRM
     Indication: Migraine prophylaxis
     Route: 058
     Dates: start: 20231219
  2. UBRELVY [Concomitant]
     Active Substance: UBROGEPANT
  3. AMITRIPTYLINE [Concomitant]
     Active Substance: AMITRIPTYLINE
  4. BOTOX [Concomitant]
     Active Substance: ONABOTULINUMTOXINA
  5. RIZATRIPTAN [Concomitant]
     Active Substance: RIZATRIPTAN

REACTIONS (6)
  - Syncope [Unknown]
  - Dyspnoea [Unknown]
  - Seizure like phenomena [Unknown]
  - Injection related reaction [Unknown]
  - Chest discomfort [Unknown]
  - Nausea [Unknown]

NARRATIVE: CASE EVENT DATE: 20231201
